FAERS Safety Report 23741757 (Version 2)
Quarter: 2024Q2

REPORT INFORMATION
  Report Type: Spontaneous
  Country: CN (occurrence: None)
  Receive Date: 20240415
  Receipt Date: 20240417
  Transmission Date: 20240716
  Serious: Yes (Hospitalization, Other)
  Sender: FDA-Public Use
  Company Number: CN-Unichem Pharmaceuticals (USA) Inc-UCM202404-000375

PATIENT
  Age: 32 Year
  Sex: Male

DRUGS (1)
  1. CLONIDINE HYDROCHLORIDE [Suspect]
     Active Substance: CLONIDINE HYDROCHLORIDE
     Indication: Product used for unknown indication
     Dosage: UNKNOWN

REACTIONS (15)
  - Unresponsive to stimuli [Recovered/Resolved]
  - Loss of consciousness [Recovered/Resolved]
  - Mental status changes [Recovered/Resolved]
  - Cough [Recovered/Resolved]
  - Wheezing [Recovered/Resolved]
  - Tinnitus [Recovered/Resolved]
  - Dyspnoea [Recovered/Resolved]
  - Sinus bradycardia [Recovered/Resolved]
  - Drug level increased [Recovered/Resolved]
  - Dizziness [Recovered/Resolved]
  - Coma scale abnormal [Recovered/Resolved]
  - Hypertension [Recovered/Resolved]
  - Toxicity to various agents [Unknown]
  - Occupational exposure to product [Unknown]
  - Overdose [Unknown]
